FAERS Safety Report 7460480-4 (Version None)
Quarter: 2011Q2

REPORT INFORMATION
  Report Type: 
  Country: None (occurrence: None)
  Receive Date: 20110505
  Receipt Date: 20110502
  Transmission Date: 20111010
  Serious: Yes (Hospitalization, Other)
  Sender: FDA-Public Use
  Company Number: US-PFIZER INC-2011030033

PATIENT
  Sex: Female

DRUGS (15)
  1. FLEXERIL [Concomitant]
     Indication: FIBROMYALGIA
  2. IMITREX [Concomitant]
  3. TRAMADOL [Concomitant]
     Indication: PAIN MANAGEMENT
     Dosage: UNK
     Dates: start: 20070101
  4. TOPAMAX [Concomitant]
  5. ELAVIL [Concomitant]
     Indication: DEPRESSION
     Dosage: UNK
     Dates: start: 20050101, end: 20100101
  6. PREMARIN [Concomitant]
     Indication: BLOOD OESTROGEN
     Dosage: UNK
     Dates: start: 20060101
  7. CHANTIX [Suspect]
     Indication: SMOKING CESSATION THERAPY
     Dosage: STARTER PACK AND 1 MG
     Dates: start: 20080309, end: 20090601
  8. CLONAZEPAM [Concomitant]
     Indication: ANXIETY
  9. CLONAZEPAM [Concomitant]
  10. FLEXERIL [Concomitant]
     Indication: PAIN MANAGEMENT
     Dosage: UNK
     Dates: start: 20070101
  11. CLONAZEPAM [Concomitant]
     Indication: CONVULSION
     Dosage: UNK
     Dates: start: 20060101
  12. IMITREX [Concomitant]
     Indication: MIGRAINE
     Dosage: UNK
     Dates: start: 20070101
  13. HYDROCHLOROTHIAZIDE [Concomitant]
     Indication: HYPERTENSION
     Dosage: UNK
     Dates: start: 20070101
  14. TOPAMAX [Concomitant]
     Indication: CONVULSION
     Dosage: UNK
     Dates: start: 20040101
  15. TRAMADOL [Concomitant]
     Indication: FIBROMYALGIA

REACTIONS (11)
  - INJURY [None]
  - FALL [None]
  - NIGHTMARE [None]
  - AGGRESSION [None]
  - MIGRAINE [None]
  - DEPRESSION [None]
  - DIZZINESS [None]
  - CONVULSION [None]
  - LOSS OF CONSCIOUSNESS [None]
  - ANXIETY [None]
  - INSOMNIA [None]
